FAERS Safety Report 7292538-7 (Version None)
Quarter: 2011Q1

REPORT INFORMATION
  Report Type: 
  Country: None (occurrence: None)
  Receive Date: 20110209
  Receipt Date: 20110209
  Transmission Date: 20110831
  Serious: Yes (Hospitalization)
  Sender: FDA-Public Use
  Company Number: None

PATIENT
  Sex: Male
  Weight: 78 kg

DRUGS (2)
  1. LENALIDOMIDE [Suspect]
     Indication: MULTIPLE MYELOMA
     Dosage: LENALIDOMIDE 10 MG DAYS 1-21 PO
     Route: 048
     Dates: start: 20110105, end: 20110123
  2. BENDAMUSTINE 75 MG/M2 CEPHALON [Suspect]
     Indication: MULTIPLE MYELOMA
     Dosage: BENDAMUSTINE 152 MG DAY 1+ 2 IV
     Route: 042
     Dates: start: 20110105, end: 20110106

REACTIONS (6)
  - DYSPNOEA [None]
  - NEUTROPENIA [None]
  - CHILLS [None]
  - THROMBOCYTOPENIA [None]
  - ANAEMIA [None]
  - COUGH [None]
